FAERS Safety Report 9466431 (Version 3)
Quarter: 2013Q4

REPORT INFORMATION
  Report Type: Spontaneous
  Country: US (occurrence: US)
  Receive Date: 20130820
  Receipt Date: 20131204
  Transmission Date: 20140711
  Serious: No
  Sender: FDA-Public Use
  Company Number: US-PFIZER INC-2013240930

PATIENT
  Age: 54 Year
  Sex: Female
  Weight: 90.7 kg

DRUGS (4)
  1. CHANTIX [Suspect]
     Indication: SMOKING CESSATION THERAPY
     Dosage: 0.5 MG, 1X/DAY
     Route: 048
     Dates: start: 201308, end: 2013
  2. CHANTIX [Suspect]
     Dosage: 1 MG, 2X/DAY
     Route: 048
     Dates: start: 2013, end: 201310
  3. LISINOPRIL [Concomitant]
     Indication: HYPERTENSION
     Dosage: 20 MG, 2X/DAY
  4. CLONIDINE [Concomitant]
     Dosage: 1 MG, 3X/DAY

REACTIONS (2)
  - Nausea [Unknown]
  - Drug ineffective [Unknown]
